FAERS Safety Report 8224594-3 (Version None)
Quarter: 2012Q1

REPORT INFORMATION
  Report Type: 
  Country: None (occurrence: None)
  Receive Date: 20120321
  Receipt Date: 20120312
  Transmission Date: 20120608
  Serious: Yes (Hospitalization)
  Sender: FDA-Public Use
  Company Number: CH-GILEAD-2011-0043264

PATIENT
  Sex: Male

DRUGS (13)
  1. KALETRA [Suspect]
     Indication: HIV INFECTION
     Dosage: 2 UNK, UNK
     Route: 048
     Dates: start: 20080604, end: 20110721
  2. CALCIMAGON-D3 [Concomitant]
  3. OMEPRAZOLE [Concomitant]
  4. METHADONE HCL [Concomitant]
  5. ABACAVIR SULFATE/LAMIVUDINE [Concomitant]
     Dosage: UNK
     Dates: start: 20110916
  6. TRUVADA [Suspect]
     Indication: HIV INFECTION
     Dosage: 245 MG, QD
     Route: 048
     Dates: end: 20110721
  7. VI DE [Concomitant]
  8. VOLTAREN [Suspect]
     Indication: OSTEOPOROSIS
     Dosage: 100 MG, QD
     Route: 048
     Dates: start: 20090101, end: 20110721
  9. LAMIVUDINE (EPIVIR HBV) [Concomitant]
     Indication: HIV INFECTION
     Dosage: 300 MG, QD
     Route: 048
     Dates: start: 20110728, end: 20110916
  10. ZOLPIDEM [Concomitant]
  11. ISENTRESS [Concomitant]
     Dosage: UNK
     Dates: start: 20110728
  12. FRAXIFORTE [Concomitant]
     Dosage: UNK
     Dates: start: 20071231, end: 20110721
  13. ZIAGEN [Concomitant]
     Dosage: UNK
     Dates: start: 20110728, end: 20110916

REACTIONS (3)
  - RENAL FAILURE [None]
  - RENAL TUBULAR DISORDER [None]
  - FANCONI SYNDROME ACQUIRED [None]
